FAERS Safety Report 9192697 (Version 1)
Quarter: 2013Q1

REPORT INFORMATION
  Report Type: Spontaneous
  Country: US (occurrence: None)
  Receive Date: 20130325
  Receipt Date: 20130325
  Transmission Date: 20140127
  Serious: Yes (Hospitalization)
  Sender: FDA-Public Use
  Company Number: None

PATIENT
  Age: 53 Year
  Sex: Female

DRUGS (3)
  1. PEGINTRON [Suspect]
     Indication: HEPATITIS C
     Route: 058
  2. RIBAPAK [Suspect]
     Indication: HEPATITIS C
     Route: 048
  3. INCIVEK [Concomitant]

REACTIONS (1)
  - Anaemia [None]
